APPROVED DRUG PRODUCT: BACLOFEN
Active Ingredient: BACLOFEN
Strength: 10MG
Dosage Form/Route: TABLET;ORAL
Application: A211659 | Product #001 | TE Code: AB
Applicant: ZYDUS LIFESCIENCES GLOBAL FZE
Approved: Nov 23, 2018 | RLD: No | RS: No | Type: RX